FAERS Safety Report 10528309 (Version 2)
Quarter: 2015Q3

REPORT INFORMATION
  Report Type: Spontaneous
  Country: US (occurrence: US)
  Receive Date: 20141020
  Receipt Date: 20150708
  Transmission Date: 20151125
  Serious: Yes (Hospitalization, Other)
  Sender: FDA-Public Use
  Company Number: US-BAYER-2014-154977

PATIENT
  Age: 26 Year
  Sex: Female
  Weight: 77.98 kg

DRUGS (2)
  1. MIRENA [Suspect]
     Active Substance: LEVONORGESTREL
     Indication: CONTRACEPTION
     Dosage: 20 MCG/24HR, CONT
     Route: 015
     Dates: start: 200708, end: 201012
  2. MIRENA [Suspect]
     Active Substance: LEVONORGESTREL
     Indication: CONTRACEPTION
     Dosage: 20 MCG/24HR, CONT
     Route: 015
     Dates: start: 20110421, end: 20111018

REACTIONS (12)
  - Genital haemorrhage [Recovering/Resolving]
  - Cyst [None]
  - Pregnancy with contraceptive device [None]
  - Drug ineffective [None]
  - Infection [None]
  - Hysterectomy [None]
  - Abdominal pain [None]
  - Uterine perforation [None]
  - Injury [None]
  - Complication of pregnancy [None]
  - Device failure [None]
  - Pain [None]

NARRATIVE: CASE EVENT DATE: 201005
